FAERS Safety Report 9370257 (Version 1)
Quarter: 2013Q2

REPORT INFORMATION
  Report Type: Spontaneous
  Country: US (occurrence: None)
  Receive Date: 20130624
  Receipt Date: 20130624
  Transmission Date: 20140414
  Serious: No
  Sender: FDA-Public Use
  Company Number: B0900883A

PATIENT
  Age: 19 Month
  Sex: Female

DRUGS (5)
  1. DIPHENHYDRAMINE [Suspect]
     Indication: PRODUCT USED FOR UNKNOWN INDICATION
     Route: 042
  2. PHENYLEPHRINE [Suspect]
     Indication: PRODUCT USED FOR UNKNOWN INDICATION
     Dosage: 4 DROP (S) PER DAY
     Route: 031
  3. VENTOLIN [Suspect]
     Indication: PROPHYLAXIS AGAINST BRONCHOSPASM
  4. OXYMETAZOLINE [Suspect]
     Indication: PRODUCT USED FOR UNKNOWN INDICATION
     Dosage: INTRANASAL
  5. MELPHALAN [Concomitant]

REACTIONS (2)
  - Cerebral vasoconstriction [None]
  - Hypotension [None]
